FAERS Safety Report 18826505 (Version 2)
Quarter: 2021Q1

REPORT INFORMATION
  Report Type: Spontaneous
  Country: GB (occurrence: GB)
  Receive Date: 20210202
  Receipt Date: 20210301
  Transmission Date: 20210419
  Serious: Yes (Disabling, Other)
  Sender: FDA-Public Use
  Company Number: GB-TEVA-2018-GB-885083

PATIENT
  Age: 52 Year
  Sex: Female
  Weight: 73.47 kg

DRUGS (3)
  1. OMEPRAZOLE. [Concomitant]
     Active Substance: OMEPRAZOLE
     Route: 065
  2. LEVOTHYROXINE SODIUM. [Suspect]
     Active Substance: LEVOTHYROXINE SODIUM
     Indication: HYPOTHYROIDISM
     Route: 048
     Dates: start: 20180107, end: 20180120
  3. ACCORD?UK LEVOTHYROXINE [Suspect]
     Active Substance: LEVOTHYROXINE SODIUM ANHYDROUS
     Indication: HYPOTHYROIDISM
     Dosage: 100 MCG
     Route: 048
     Dates: end: 20170212

REACTIONS (1)
  - Urticaria [None]

NARRATIVE: CASE EVENT DATE: 20180110
